FAERS Safety Report 21590816 (Version 1)
Quarter: 2022Q4

REPORT INFORMATION
  Report Type: Report from Study
  Country: US (occurrence: US)
  Receive Date: 20221114
  Receipt Date: 20221114
  Transmission Date: 20230113
  Serious: Yes (Other)
  Sender: FDA-Public Use
  Company Number: US-ABBVIE-4196797

PATIENT
  Sex: Male

DRUGS (4)
  1. VENCLEXTA [Suspect]
     Active Substance: VENETOCLAX
     Indication: Acute myeloid leukaemia
     Dosage: DAY 1: 100MG; FORM STRENGTH: 100 MILLIGRAM
     Route: 048
     Dates: start: 20221017
  2. VENCLEXTA [Suspect]
     Active Substance: VENETOCLAX
     Indication: Acute myeloid leukaemia
     Dosage: DAY 2; 200 MILLIGRAM; FORM STRENGTH: 100 MILLIGRAM
     Route: 048
  3. VENCLEXTA [Suspect]
     Active Substance: VENETOCLAX
     Indication: Acute myeloid leukaemia
     Dosage: DAY 3: 400 MILLIGRAM; FORM STRENGTH: 100 MILLIGRAM
     Route: 048
  4. VIDAZA [Concomitant]
     Active Substance: AZACITIDINE
     Indication: Myelodysplastic syndrome
     Dosage: 75MG/M2 IN 100ML NS IV OVER 30 MINUTES DAYS 1-5
     Route: 042

REACTIONS (1)
  - Acute myeloid leukaemia [Unknown]
